FAERS Safety Report 11885257 (Version 3)
Quarter: 2016Q2

REPORT INFORMATION
  Report Type: Spontaneous
  Country: US (occurrence: US)
  Receive Date: 20160104
  Receipt Date: 20160419
  Transmission Date: 20160815
  Serious: Yes (Death, Hospitalization, Other)
  Sender: FDA-Public Use
  Company Number: US-BIOGEN-2015BI00166910

PATIENT
  Age: 58 Year
  Sex: Female

DRUGS (3)
  1. LOVENOX [Concomitant]
     Active Substance: ENOXAPARIN SODIUM
     Indication: ANTICOAGULANT THERAPY
     Route: 065
  2. TECFIDERA [Interacting]
     Active Substance: DIMETHYL FUMARATE
     Route: 048
     Dates: start: 20140314, end: 20150115
  3. TECFIDERA [Suspect]
     Active Substance: DIMETHYL FUMARATE
     Indication: MULTIPLE SCLEROSIS
     Route: 048
     Dates: start: 20131202, end: 20140314

REACTIONS (11)
  - Decreased immune responsiveness [Unknown]
  - Underdose [Recovered/Resolved]
  - Abscess [Fatal]
  - Anaemia [Unknown]
  - Sepsis [Fatal]
  - Septic shock [Fatal]
  - Metabolic encephalopathy [Unknown]
  - Adrenal insufficiency [Unknown]
  - Urinary tract infection [Unknown]
  - Quadriplegia [Unknown]
  - Malnutrition [Unknown]

NARRATIVE: CASE EVENT DATE: 20140103
